FAERS Safety Report 22084089 (Version 7)
Quarter: 2024Q3

REPORT INFORMATION
  Report Type: Report from Study
  Country: US (occurrence: US)
  Receive Date: 20230310
  Receipt Date: 20240819
  Transmission Date: 20241016
  Serious: Yes (Hospitalization, Other)
  Sender: MYLAN
  Company Number: US-MYLANLABS-2023M1025736

PATIENT
  Sex: Female
  Weight: 99.79 kg

DRUGS (3)
  1. GLATIRAMER ACETATE [Suspect]
     Active Substance: GLATIRAMER ACETATE
     Indication: Relapsing-remitting multiple sclerosis
     Dosage: 40 MILLIGRAM, 3XW
     Route: 058
     Dates: end: 20240331
  2. GLATIRAMER ACETATE [Suspect]
     Active Substance: GLATIRAMER ACETATE
     Indication: Multiple sclerosis
     Dosage: 40 MILLIGRAM, 3XW
     Route: 058
  3. ACETAZOLAMIDE [Concomitant]
     Active Substance: ACETAZOLAMIDE
     Indication: Hydrocephalus
     Dosage: UNK
     Route: 065

REACTIONS (19)
  - Multiple sclerosis [Unknown]
  - Myocardial infarction [Recovered/Resolved]
  - Respiratory distress [Unknown]
  - Coma [Unknown]
  - Cardiac arrest [Unknown]
  - Hypertension [Unknown]
  - Dyspnoea [Unknown]
  - Pneumonia [Unknown]
  - Urinary tract infection [Unknown]
  - Weight bearing difficulty [Unknown]
  - Bladder disorder [Unknown]
  - Balance disorder [Unknown]
  - Gastrointestinal disorder [Unknown]
  - Blood calcium decreased [Unknown]
  - Ankle fracture [Unknown]
  - Food refusal [Unknown]
  - Tremor [Unknown]
  - Back pain [Unknown]
  - Nausea [Unknown]

NARRATIVE: CASE EVENT DATE: 20240101
